FAERS Safety Report 6141148-3 (Version None)
Quarter: 2009Q2

REPORT INFORMATION
  Report Type: 
  Country: None (occurrence: None)
  Receive Date: 20090402
  Receipt Date: 20090323
  Transmission Date: 20091009
  Serious: Yes (Hospitalization, Other)
  Sender: FDA-Public Use
  Company Number: US-PFIZER INC-2009190983

PATIENT
  Sex: Male
  Weight: 105.68 kg

DRUGS (4)
  1. VIAGRA [Suspect]
     Indication: ERECTILE DYSFUNCTION
     Dosage: 100 MG, AS NEEDED
  2. SERTRALINE HCL [Suspect]
     Indication: NERVOUSNESS
     Dosage: UNK
  3. TRAZODONE HYDROCHLORIDE [Suspect]
     Indication: SLEEP DISORDER
  4. LISINOPRIL AND HYDROCHLOROTHIAZIDE [Concomitant]
     Dosage: UNK

REACTIONS (10)
  - BLOOD PRESSURE DECREASED [None]
  - DIZZINESS [None]
  - DRUG INEFFECTIVE [None]
  - FALL [None]
  - INJURY [None]
  - LOSS OF CONSCIOUSNESS [None]
  - NERVOUSNESS [None]
  - RIB FRACTURE [None]
  - SLEEP DISORDER [None]
  - TREMOR [None]
